FAERS Safety Report 11286232 (Version 1)
Quarter: 2015Q3

REPORT INFORMATION
  Report Type: Spontaneous
  Country: US (occurrence: US)
  Receive Date: 20150721
  Receipt Date: 20150721
  Transmission Date: 20151125
  Serious: No
  Sender: FDA-Public Use
  Company Number: US-UNITED THERAPEUTICS-UNT-2015-001017

PATIENT
  Age: 56 Year
  Sex: Female
  Weight: 90.25 kg

DRUGS (3)
  1. REVATIO [Concomitant]
     Active Substance: SILDENAFIL CITRATE
     Indication: PRODUCT USED FOR UNKNOWN INDICATION
  2. TYVASO [Suspect]
     Active Substance: TREPROSTINIL
     Indication: PULMONARY HYPERTENSION
     Dosage: 18-54 MICROGRAM, QID
     Dates: start: 20150119
  3. WARFARIN [Concomitant]
     Active Substance: WARFARIN
     Indication: PRODUCT USED FOR UNKNOWN INDICATION

REACTIONS (7)
  - Diarrhoea [Unknown]
  - Nasal congestion [Unknown]
  - Headache [Unknown]
  - Vomiting [Unknown]
  - Cough [Unknown]
  - Abdominal distension [Unknown]
  - Nausea [Unknown]

NARRATIVE: CASE EVENT DATE: 201501
